FAERS Safety Report 14321484 (Version 1)
Quarter: 2017Q4

REPORT INFORMATION
  Report Type: Spontaneous
  Country: JP (occurrence: JP)
  Receive Date: 20171223
  Receipt Date: 20171223
  Transmission Date: 20180321
  Serious: Yes (Hospitalization)
  Sender: FDA-Public Use
  Company Number: GXJP2017JP001884

PATIENT
  Age: 51 Year
  Sex: Female
  Weight: 40.1 kg

DRUGS (11)
  1. RIFAMPICIN [Suspect]
     Active Substance: RIFAMPIN
     Indication: ATYPICAL MYCOBACTERIAL INFECTION
     Dosage: 300 MG, QD
     Route: 048
     Dates: start: 2015
  2. LEVOFLOXACIN. [Suspect]
     Active Substance: LEVOFLOXACIN
     Indication: ATYPICAL MYCOBACTERIAL INFECTION
     Dosage: 250 MG, QD
     Route: 048
     Dates: start: 201504
  3. CLARITHROMYCIN. [Suspect]
     Active Substance: CLARITHROMYCIN
     Indication: ATYPICAL MYCOBACTERIAL INFECTION
     Dosage: UNK
     Route: 048
     Dates: start: 201504
  4. ERYTHROMYCIN. [Suspect]
     Active Substance: ERYTHROMYCIN
     Indication: ATYPICAL MYCOBACTERIAL INFECTION
     Dosage: 200 MG, QW3
     Route: 065
     Dates: start: 2015
  5. RIFAMPICIN [Suspect]
     Active Substance: RIFAMPIN
     Dosage: 300 MG, QD
     Route: 048
     Dates: start: 2015
  6. MOXIFLOXACIN. [Suspect]
     Active Substance: MOXIFLOXACIN
     Indication: ATYPICAL MYCOBACTERIAL INFECTION
     Dosage: 400 MG, QW3
     Route: 065
     Dates: start: 2015
  7. CIPROFLOXACIN. [Concomitant]
     Active Substance: CIPROFLOXACIN
     Indication: PSEUDOMONAS INFECTION
     Dosage: 300 MG, QD
     Route: 041
     Dates: start: 2015
  8. ETHAMBUTOL [Suspect]
     Active Substance: ETHAMBUTOL HYDROCHLORIDE
     Indication: ATYPICAL MYCOBACTERIAL INFECTION
     Dosage: 500 MG, QD
     Route: 048
     Dates: start: 2015
  9. CEFEPIME [Concomitant]
     Active Substance: CEFEPIME HYDROCHLORIDE
     Indication: ATYPICAL MYCOBACTERIAL INFECTION
  10. CEFEPIME [Concomitant]
     Active Substance: CEFEPIME HYDROCHLORIDE
     Indication: STAPHYLOCOCCAL INFECTION
     Dosage: 0.5 G, QD
     Route: 041
     Dates: start: 2016
  11. CEFEPIME [Concomitant]
     Active Substance: CEFEPIME HYDROCHLORIDE
     Indication: PSEUDOMONAS INFECTION

REACTIONS (2)
  - Renal impairment [Not Recovered/Not Resolved]
  - Hepatic function abnormal [Unknown]
